FAERS Safety Report 4869760-X (Version None)
Quarter: 2005Q4

REPORT INFORMATION
  Report Type: 
  Country: None (occurrence: None)
  Receive Date: 20051227
  Receipt Date: 20051219
  Transmission Date: 20060501
  Serious: Yes (Hospitalization)
  Sender: FDA-Public Use
  Company Number: US-2005-021952

PATIENT
  Age: 37 Year
  Sex: Female
  Weight: 54.4 kg

DRUGS (1)
  1. YASMIN [Suspect]
     Indication: ORAL CONTRACEPTION
     Dosage: 1 TAB(S), 1XDAY, ORAL
     Route: 048
     Dates: start: 20041109, end: 20050801

REACTIONS (5)
  - BACTERIURIA [None]
  - BLOOD URINE PRESENT [None]
  - ESCHERICHIA INFECTION [None]
  - HAEMORRHOIDAL HAEMORRHAGE [None]
  - PREGNANCY ON ORAL CONTRACEPTIVE [None]
